FAERS Safety Report 9056043 (Version 5)
Quarter: 2020Q3

REPORT INFORMATION
  Report Type: Report from Study
  Country: FR (occurrence: FR)
  Receive Date: 20130205
  Receipt Date: 20140403
  Transmission Date: 20201104
  Serious: Yes (Hospitalization)
  Sender: FDA-Public Use
  Company Number: FR-JNJFOC-20121001881

PATIENT
  Age: 26 Year
  Sex: Male
  Weight: 72 kg

DRUGS (21)
  1. DEXAMBUTOL [Concomitant]
     Active Substance: ETHAMBUTOL HYDROCHLORIDE
     Indication: TUBERCULOSIS
     Dosage: 1 G ON TUES, THUR, SAT AND SUN,1.5 G MON, WED AND FRI
     Route: 048
  2. AMIKLIN [Concomitant]
     Active Substance: AMIKACIN SULFATE
     Indication: TUBERCULOSIS
     Route: 042
     Dates: start: 20120706, end: 20120921
  3. TMC207 [Suspect]
     Active Substance: BEDAQUILINE
     Indication: TUBERCULOSIS
     Route: 048
     Dates: start: 20120802, end: 20120920
  4. DEXAMBUTOL [Concomitant]
     Active Substance: ETHAMBUTOL HYDROCHLORIDE
     Indication: TUBERCULOSIS
     Dosage: 500 MG, 2 TABLETS PER DAY
     Route: 048
     Dates: start: 20120706, end: 20120921
  5. TRECATOR [Concomitant]
     Active Substance: ETHIONAMIDE
     Indication: TUBERCULOSIS
     Dosage: IN THE MORNING, AT MIDTIME AND IN THE EVENING
     Route: 048
  6. TMC207 [Suspect]
     Active Substance: BEDAQUILINE
     Indication: TUBERCULOSIS
     Route: 048
     Dates: start: 20120924, end: 20130228
  7. DEXAMBUTOL [Concomitant]
     Active Substance: ETHAMBUTOL HYDROCHLORIDE
     Indication: TUBERCULOSIS
     Dosage: MON, WED AND FRI
     Route: 048
  8. PASER [Concomitant]
     Active Substance: AMINOSALICYLIC ACID
     Indication: TUBERCULOSIS
     Route: 048
     Dates: start: 20120706, end: 20120905
  9. CYCLOSERINE. [Concomitant]
     Active Substance: CYCLOSERINE
     Indication: TUBERCULOSIS
     Dosage: IN THE MORNING AND IN THE EVENING
  10. VITAMIN B1 B6 [Concomitant]
     Indication: PRODUCT USED FOR UNKNOWN INDICATION
     Dosage: 250MG/35MG
     Route: 048
     Dates: start: 201207
  11. SCOPODERM [Concomitant]
     Active Substance: SCOPOLAMINE
     Indication: PRODUCT USED FOR UNKNOWN INDICATION
  12. HYDROSOL POLYVITAMINE [Concomitant]
     Indication: PRODUCT USED FOR UNKNOWN INDICATION
  13. AMIKLIN [Concomitant]
     Active Substance: AMIKACIN SULFATE
     Indication: TUBERCULOSIS
     Route: 042
  14. DIFFU K [Concomitant]
     Active Substance: POTASSIUM CHLORIDE
     Indication: PRODUCT USED FOR UNKNOWN INDICATION
     Dosage: 2 TO 6 TIMES A DAY
     Route: 048
     Dates: start: 20120727
  15. PIRILENE [Suspect]
     Active Substance: PYRAZINAMIDE
     Indication: TUBERCULOSIS
     Dosage: 500 MG, 2.5 TABLETS PER DAY
     Route: 048
     Dates: start: 20120706, end: 20120921
  16. TRECATOR [Concomitant]
     Active Substance: ETHIONAMIDE
     Indication: TUBERCULOSIS
     Route: 048
     Dates: start: 20120925
  17. TIORFAN [Concomitant]
     Active Substance: RACECADOTRIL
     Indication: DIARRHOEA
     Route: 048
     Dates: start: 20120903
  18. BECILAN [Concomitant]
     Active Substance: PYRIDOXINE
     Indication: PRODUCT USED FOR UNKNOWN INDICATION
     Dosage: 3 TABLETS OF 250 MG PER DAY
  19. DEXAMBUTOL [Concomitant]
     Active Substance: ETHAMBUTOL HYDROCHLORIDE
     Indication: TUBERCULOSIS
     Route: 048
     Dates: start: 20120925
  20. TRECATOR [Concomitant]
     Active Substance: ETHIONAMIDE
     Indication: TUBERCULOSIS
     Dosage: 250 MG, 3 TABLETS PER DAY
     Route: 048
     Dates: start: 20120905, end: 20120921
  21. BEVITINE [Concomitant]
     Active Substance: THIAMINE HYDROCHLORIDE
     Indication: PRODUCT USED FOR UNKNOWN INDICATION

REACTIONS (3)
  - Therapy interrupted [Recovered/Resolved]
  - Hepatocellular injury [Recovered/Resolved]
  - Extrasystoles [Unknown]

NARRATIVE: CASE EVENT DATE: 201209
